FAERS Safety Report 4968899-8 (Version None)
Quarter: 2006Q2

REPORT INFORMATION
  Report Type: 
  Country: None (occurrence: None)
  Receive Date: 20060411
  Receipt Date: 20060313
  Transmission Date: 20061013
  Serious: Yes (Hospitalization, Disabling)
  Sender: FDA-Public Use
  Company Number: US-MERCK-0603USA02215

PATIENT
  Age: 47 Year
  Sex: Female
  Weight: 123 kg

DRUGS (17)
  1. VIOXX [Suspect]
     Indication: ARTHRITIS
     Route: 048
     Dates: start: 19990801, end: 20040901
  2. VIOXX [Suspect]
     Indication: PAIN
     Route: 048
     Dates: start: 19990801, end: 20040901
  3. KEPPRA [Concomitant]
     Route: 065
  4. ASPIRIN [Concomitant]
     Route: 065
  5. PLAVIX [Concomitant]
     Route: 065
  6. NORVASC [Concomitant]
     Route: 065
  7. LOTENSIN [Concomitant]
     Route: 065
  8. VERELAN [Concomitant]
     Route: 065
  9. CRESTOR [Concomitant]
     Route: 065
  10. ACTOS [Concomitant]
     Route: 065
  11. COLACE [Concomitant]
     Route: 065
  12. DITROPAN XL [Concomitant]
     Route: 065
  13. PREVACID [Concomitant]
     Route: 065
  14. FLEXERIL [Concomitant]
     Route: 065
  15. TYLENOL (CAPLET) [Concomitant]
     Route: 065
  16. EXCEDRIN (MIGRAINE) [Concomitant]
     Route: 065
  17. SINGULAIR [Concomitant]
     Route: 065

REACTIONS (4)
  - CEREBROVASCULAR ACCIDENT [None]
  - DEPRESSION [None]
  - PNEUMONIA [None]
  - TRANSIENT ISCHAEMIC ATTACK [None]
